FAERS Safety Report 4717361-6 (Version None)
Quarter: 2005Q3

REPORT INFORMATION
  Report Type: 
  Country: None (occurrence: None)
  Receive Date: 20050711
  Receipt Date: 20050524
  Transmission Date: 20060218
  Serious: Yes (Hospitalization)
  Sender: FDA-Public Use
  Company Number: A03200501561

PATIENT
  Age: 75 Year
  Sex: Male
  Weight: 77.1115 kg

DRUGS (2)
  1. UROXATRAL [Suspect]
     Indication: GALLBLADDER DISORDER
     Dosage: 10 MG OD - ORAL
     Route: 048
     Dates: start: 20050101, end: 20050409
  2. SAW PALMETTO [Concomitant]

REACTIONS (3)
  - FEELING ABNORMAL [None]
  - LOSS OF CONSCIOUSNESS [None]
  - VISION BLURRED [None]
